FAERS Safety Report 4331448-1 (Version None)
Quarter: 2004Q1

REPORT INFORMATION
  Report Type: 
  Country: None (occurrence: None)
  Receive Date: 20040331
  Receipt Date: 20040322
  Transmission Date: 20041129
  Serious: No
  Sender: FDA-Public Use
  Company Number: 2004GB00700

PATIENT
  Age: 15 Year
  Sex: Male
  Weight: 53 kg

DRUGS (4)
  1. ACCOLATE [Suspect]
     Indication: ASTHMA
     Dosage: 20 MG QD PO
     Route: 048
     Dates: start: 20030715, end: 20030717
  2. FLIXOTIDE    ALLEN + HANBURYS [Concomitant]
  3. SEREVENT [Concomitant]
  4. VENTOLIN [Concomitant]

REACTIONS (1)
  - DYSPNOEA [None]
